FAERS Safety Report 5368876-1 (Version None)
Quarter: 2007Q2

REPORT INFORMATION
  Report Type: 
  Country: None (occurrence: None)
  Receive Date: 20070625
  Receipt Date: 20070313
  Transmission Date: 20071010
  Serious: Yes (Other)
  Sender: FDA-Public Use
  Company Number: US-ASTRAZENECA-2004UW23974

PATIENT
  Age: 73 Year
  Sex: Male
  Weight: 113.4 kg

DRUGS (3)
  1. CRESTOR [Suspect]
     Indication: BLOOD TRIGLYCERIDES
     Route: 048
     Dates: start: 20040601, end: 20041121
  2. ACTOS [Concomitant]
     Indication: DIABETES MELLITUS
  3. TIAZAC [Concomitant]
     Indication: HYPERTENSION

REACTIONS (3)
  - BLOOD CREATININE INCREASED [None]
  - MYALGIA [None]
  - RENAL IMPAIRMENT [None]
